FAERS Safety Report 7547605-7 (Version None)
Quarter: 2011Q2

REPORT INFORMATION
  Report Type: 
  Country: None (occurrence: None)
  Receive Date: 20110614
  Receipt Date: 20110228
  Transmission Date: 20111010
  Serious: No
  Sender: FDA-Public Use
  Company Number: US-ALLERGAN-1102852US

PATIENT
  Age: 38 Year
  Sex: Female

DRUGS (2)
  1. ACZONE [Suspect]
     Indication: ACNE
     Dosage: 1 DF, BID
     Route: 061
  2. AFFIRM CREAM [Concomitant]
     Indication: ACNE

REACTIONS (1)
  - DRUG INEFFECTIVE [None]
